FAERS Safety Report 13456614 (Version 1)
Quarter: 2017Q2

REPORT INFORMATION
  Report Type: Spontaneous
  Country: US (occurrence: US)
  Receive Date: 20170418
  Receipt Date: 20170418
  Transmission Date: 20170830
  Serious: Yes (Other)
  Sender: FDA-Public Use
  Company Number: US-SEBELA IRELAND LIMITED-2016SEB00292

PATIENT
  Age: 59 Year
  Sex: Female
  Weight: 95.24 kg

DRUGS (12)
  1. ATIVAN [Concomitant]
     Active Substance: LORAZEPAM
  2. TECFIDERA [Concomitant]
     Active Substance: DIMETHYL FUMARATE
  3. IMURAN [Suspect]
     Active Substance: AZATHIOPRINE
     Indication: SYSTEMIC LUPUS ERYTHEMATOSUS
     Dosage: UNK
     Route: 048
  4. PROTONIX [Concomitant]
     Active Substance: PANTOPRAZOLE SODIUM
  5. OXYCODONE [Concomitant]
     Active Substance: OXYCODONE
  6. THORAZINE [Concomitant]
     Active Substance: CHLORPROMAZINE
  7. TIZANIDINE. [Concomitant]
     Active Substance: TIZANIDINE
  8. TOPAMAX [Concomitant]
     Active Substance: TOPIRAMATE
  9. RESTASIS [Concomitant]
     Active Substance: CYCLOSPORINE
  10. PLAQUENIL [Concomitant]
     Active Substance: HYDROXYCHLOROQUINE SULFATE
  11. WELLBUTRIN [Concomitant]
     Active Substance: BUPROPION HYDROCHLORIDE
  12. TIZANIDINE. [Concomitant]
     Active Substance: TIZANIDINE

REACTIONS (2)
  - Off label use [Recovered/Resolved]
  - Leukopenia [Recovered/Resolved]
